FAERS Safety Report 9691820 (Version 1)
Quarter: 2013Q4

REPORT INFORMATION
  Report Type: Spontaneous
  Country: US (occurrence: US)
  Receive Date: 20131115
  Receipt Date: 20131115
  Transmission Date: 20140711
  Serious: No
  Sender: FDA-Public Use
  Company Number: US-TEVA-444736USA

PATIENT
  Sex: Female
  Weight: 90.8 kg

DRUGS (7)
  1. NUVIGIL [Suspect]
     Indication: SOMNOLENCE
     Dates: end: 20131113
  2. SIMVASTATIN [Concomitant]
     Indication: BLOOD CHOLESTEROL INCREASED
  3. VITAMIN D [Concomitant]
     Indication: VITAMIN SUPPLEMENTATION
     Route: 048
  4. FISH OIL [Concomitant]
     Indication: VITAMIN SUPPLEMENTATION
     Route: 048
  5. ATENOLOL CHLORTHALIDONE [Concomitant]
     Indication: HYPERTENSION
  6. OMEPRAZOLE [Concomitant]
     Indication: GASTROOESOPHAGEAL REFLUX DISEASE
     Dosage: 20 MILLIGRAM DAILY;
     Route: 048
  7. CITALOPRAM [Concomitant]
     Dosage: 20  DAILY;
     Route: 048

REACTIONS (2)
  - Feeling abnormal [Recovering/Resolving]
  - Somnolence [Unknown]
